FAERS Safety Report 8274052-5 (Version None)
Quarter: 2012Q2

REPORT INFORMATION
  Report Type: 
  Country: None (occurrence: None)
  Receive Date: 20120411
  Receipt Date: 20120410
  Transmission Date: 20120825
  Serious: Yes (Death, Life-Threatening, Hospitalization)
  Sender: FDA-Public Use
  Company Number: PHEH1994US00504

PATIENT
  Sex: Female
  Weight: 59 kg

DRUGS (12)
  1. HEPARIN [Concomitant]
     Dosage: 12,000- 13,200 UNITS
     Route: 042
     Dates: start: 19940721, end: 19940722
  2. INDERAL [Concomitant]
     Dosage: 0.5 MG, QD
     Route: 042
     Dates: start: 19940723
  3. HYDROCORTISONE [Concomitant]
     Dosage: 300-150 MG
     Route: 042
     Dates: start: 19940723, end: 19940725
  4. CARAFATE [Concomitant]
     Dosage: 2 MG, QD
     Route: 048
     Dates: start: 19940725, end: 19940725
  5. NAHCO3 (SODIUM BICARBONATE) [Concomitant]
     Dosage: 2 OT, QD
     Route: 042
     Dates: start: 19940723, end: 19940723
  6. FLAGYL [Concomitant]
     Dosage: 2000 MG, QD
     Route: 042
     Dates: start: 19940723
  7. ATIVAN [Concomitant]
     Dosage: 0.5 MG, QD
     Route: 042
     Dates: start: 19940723, end: 19940723
  8. REGULAR HUMULIN INSULIN (INSULIN HUMAN) [Concomitant]
     Dosage: QD
     Route: 058
     Dates: start: 19940723, end: 19940725
  9. UROKINASE [Concomitant]
     Dosage: 750,000-60,000 UNITS
     Route: 042
     Dates: start: 19940721, end: 19940722
  10. NITROGLYCERIN [Concomitant]
     Dosage: 10 UG, QD
     Route: 042
     Dates: start: 19940721, end: 19940721
  11. NEORAL [Suspect]
     Dosage: 300 MG, QD
     Route: 048
     Dates: start: 19930809
  12. DOPAMINE HCL [Concomitant]
     Dosage: 3 UG/KG, QD
     Route: 042
     Dates: start: 19940723, end: 19940724

REACTIONS (3)
  - MYOCARDIAL INFARCTION [None]
  - ARTERIAL THROMBOSIS [None]
  - DEATH [None]
